FAERS Safety Report 20166276 (Version 2)
Quarter: 2022Q1

REPORT INFORMATION
  Report Type: Spontaneous
  Country: US (occurrence: US)
  Receive Date: 20211209
  Receipt Date: 20220117
  Transmission Date: 20220423
  Serious: No
  Sender: FDA-Public Use
  Company Number: US-GLAXOSMITHKLINE-US2021250195

PATIENT
  Sex: Female

DRUGS (2)
  1. ZEJULA [Suspect]
     Active Substance: NIRAPARIB
     Indication: Ovarian cancer
     Dosage: 200 MG, QD
     Dates: start: 20211103
  2. ZEJULA [Suspect]
     Active Substance: NIRAPARIB
     Dosage: 100 MG, QD
     Route: 048
     Dates: end: 20211230

REACTIONS (7)
  - White blood cell count decreased [Unknown]
  - Constipation [Not Recovered/Not Resolved]
  - Dizziness [Unknown]
  - Fatigue [Unknown]
  - Dry skin [Unknown]
  - Fall [Unknown]
  - Treatment noncompliance [Unknown]
